FAERS Safety Report 16759743 (Version 1)
Quarter: 2019Q3

REPORT INFORMATION
  Report Type: Spontaneous
  Country: ES (occurrence: ES)
  Receive Date: 20190830
  Receipt Date: 20190830
  Transmission Date: 20191005
  Serious: Yes (Death, Life-Threatening, Hospitalization, Other)
  Sender: FDA-Public Use
  Company Number: ES-COSETTE PHARMACEUTICALS, INC.-GW2019ES000140

PATIENT

DRUGS (2)
  1. METRONIDAZOLE. [Suspect]
     Active Substance: METRONIDAZOLE
     Dosage: 500 MG, TID
     Route: 042
  2. METRONIDAZOLE. [Suspect]
     Active Substance: METRONIDAZOLE
     Indication: CROHN^S DISEASE
     Dosage: 500 MG, BID
     Route: 048

REACTIONS (5)
  - Mobility decreased [None]
  - Death [Fatal]
  - Organ failure [Not Recovered/Not Resolved]
  - Encephalopathy [Recovered/Resolved with Sequelae]
  - Pneumonia cytomegaloviral [None]
